FAERS Safety Report 5233042-7 (Version None)
Quarter: 2007Q1

REPORT INFORMATION
  Report Type: 
  Country: None (occurrence: None)
  Receive Date: 20070207
  Receipt Date: 20070130
  Transmission Date: 20070707
  Serious: Yes (Hospitalization)
  Sender: FDA-Public Use
  Company Number: FR-BOEHRINGER INGELHEIM GMBH, GERMANY-2006-FF-00070FF

PATIENT
  Sex: Male
  Weight: 52 kg

DRUGS (12)
  1. BIBF 1120 [Suspect]
     Indication: PROSTATE CANCER
     Route: 048
     Dates: start: 20060117, end: 20060125
  2. SKENAN [Suspect]
     Indication: BONE PAIN
     Route: 048
     Dates: start: 20060118, end: 20060130
  3. NEURONTIN [Concomitant]
     Indication: BONE PAIN
     Route: 048
  4. CORTANCYL [Concomitant]
     Indication: PAIN
     Route: 048
  5. DAFALGAN [Concomitant]
     Dosage: AS REQUIRED
  6. TRAMADOL HCL [Concomitant]
     Indication: BONE PAIN
  7. DIANTALVIC [Concomitant]
     Indication: BONE PAIN
  8. POLYSILANE [Concomitant]
     Indication: ABDOMINAL PAIN UPPER
  9. INIPOMP [Concomitant]
     Indication: ABDOMINAL PAIN UPPER
  10. XALATAN [Concomitant]
     Indication: GLAUCOMA
  11. TIMABAK [Concomitant]
     Indication: GLAUCOMA
  12. FRAXIPARINE [Concomitant]
     Indication: PHLEBITIS
     Dates: start: 20060117

REACTIONS (5)
  - DEHYDRATION [None]
  - DIARRHOEA [None]
  - NAUSEA [None]
  - OVERDOSE [None]
  - URINARY RETENTION [None]
